FAERS Safety Report 5167079-3 (Version None)
Quarter: 2006Q4

REPORT INFORMATION
  Report Type: 
  Country: None (occurrence: None)
  Receive Date: 20061207
  Receipt Date: 20061121
  Transmission Date: 20070319
  Serious: Yes (Hospitalization)
  Sender: FDA-Public Use
  Company Number: 2006UW25883

PATIENT
  Age: 28450 Day
  Sex: Male
  Weight: 79.5 kg

DRUGS (13)
  1. IRESSA [Suspect]
     Indication: PROSTATE CANCER
     Route: 048
     Dates: start: 20060308, end: 20061119
  2. ETOPOSIDE [Suspect]
     Indication: PROSTATE CANCER
     Dosage: 14/28 DAYS
     Route: 048
     Dates: start: 20060308, end: 20061115
  3. PREDNISONE TAB [Concomitant]
     Indication: POLYMYALGIA RHEUMATICA
  4. POTASSIUM CHLORIDE [Concomitant]
  5. OXYCODONE HCL [Concomitant]
     Dosage: PRN
     Route: 048
  6. FERROUS SULFATE TAB [Concomitant]
     Indication: ANAEMIA OF MALIGNANT DISEASE
     Route: 048
  7. LUPRON [Concomitant]
     Route: 030
  8. ZOMETA [Concomitant]
     Route: 042
  9. AVELOX [Concomitant]
     Dosage: DAILY X 10 DAYS
     Route: 048
  10. PRILOSEC [Concomitant]
     Route: 048
  11. PROCRIT [Concomitant]
     Indication: ANAEMIA OF MALIGNANT DISEASE
  12. MULTI-VITAMIN [Concomitant]
     Dosage: 1 TABLET DAILY
     Route: 048
  13. CALCIUM [Concomitant]

REACTIONS (11)
  - ASTHENIA [None]
  - BLOOD GLUCOSE INCREASED [None]
  - DEEP VEIN THROMBOSIS [None]
  - DIZZINESS [None]
  - DYSPNOEA [None]
  - LOSS OF CONSCIOUSNESS [None]
  - PNEUMONIA [None]
  - PULMONARY EMBOLISM [None]
  - SUPERINFECTION [None]
  - TACHYCARDIA [None]
  - TROPONIN INCREASED [None]
